FAERS Safety Report 8920253 (Version 3)
Quarter: 2013Q1

REPORT INFORMATION
  Report Type: Spontaneous
  Country: US (occurrence: US)
  Receive Date: 20121121
  Receipt Date: 20130124
  Transmission Date: 20140127
  Serious: Yes (Hospitalization, Other)
  Sender: FDA-Public Use
  Company Number: US-009507513-1211USA008015

PATIENT
  Sex: 0

DRUGS (1)
  1. NUVARING [Suspect]
     Indication: CONTRACEPTION
     Dosage: 0.015 MG/0.120 MG, Q 4 WEEKS
     Route: 067
     Dates: start: 20081106, end: 20101123

REACTIONS (8)
  - Sinus tachycardia [Recovering/Resolving]
  - Pulmonary embolism [Unknown]
  - Atrial flutter [Unknown]
  - Thyroxine increased [Unknown]
  - Headache [Recovered/Resolved]
  - Anxiety [Unknown]
  - Depression [Unknown]
  - Upper respiratory tract infection [Unknown]
